FAERS Safety Report 5997971-9 (Version None)
Quarter: 2008Q4

REPORT INFORMATION
  Report Type: 
  Country: None (occurrence: None)
  Receive Date: 20081212
  Receipt Date: 20081118
  Transmission Date: 20090506
  Serious: No
  Sender: FDA-Public Use
  Company Number: US-ABBOTT-08P-163-0490774-00

PATIENT
  Sex: Female
  Weight: 74.456 kg

DRUGS (3)
  1. HUMIRA [Suspect]
     Indication: CROHN'S DISEASE
     Dosage: FORM: 40 MILLIGRAMS
     Route: 058
     Dates: start: 20081111
  2. HUMIRA [Suspect]
     Dosage: FORM: 40 MILLIGRAMS
     Route: 058
     Dates: start: 20081118, end: 20081118
  3. ASOCOL [Concomitant]
     Indication: DRUG USE FOR UNKNOWN INDICATION
     Route: 048

REACTIONS (2)
  - INJECTION SITE IRRITATION [None]
  - INJECTION SITE PAIN [None]
